FAERS Safety Report 8570227-6 (Version None)
Quarter: 2012Q3

REPORT INFORMATION
  Report Type: 
  Country: None (occurrence: None)
  Receive Date: 20120803
  Receipt Date: 20120723
  Transmission Date: 20120928
  Serious: Yes (Other)
  Sender: FDA-Public Use
  Company Number: US-009507513-1207USA010213

PATIENT

DRUGS (9)
  1. WARFARIN SODIUM [Concomitant]
     Dosage: 12.5 MG, UNK
  2. DRONEDARONE HCL [Suspect]
  3. FLECAINIDE ACETATE [Suspect]
  4. ZOCOR [Suspect]
     Route: 048
  5. ATORVASTATIN [Suspect]
  6. LOSARTAN POTASSIUM [Concomitant]
  7. BISOPROLOL FUMARATE [Concomitant]
  8. WARFARIN SODIUM [Concomitant]
     Dosage: 15 MG, UNK
  9. BUDESONIDE (+) FORMOTEROL FUMARATE [Concomitant]

REACTIONS (5)
  - PAIN IN EXTREMITY [None]
  - ATRIAL FIBRILLATION [None]
  - INFARCTION [None]
  - GAIT DISTURBANCE [None]
  - DRUG INEFFECTIVE [None]
